FAERS Safety Report 17739979 (Version 2)
Quarter: 2020Q3

REPORT INFORMATION
  Report Type: Spontaneous
  Country: US (occurrence: US)
  Receive Date: 20200504
  Receipt Date: 20200804
  Transmission Date: 20201102
  Serious: No
  Sender: FDA-Public Use
  Company Number: US-FOAMIX PHARMACEUTICALS LTD.-2020US001304

PATIENT
  Sex: Female

DRUGS (1)
  1. AMZEEQ [Suspect]
     Active Substance: MINOCYCLINE HYDROCHLORIDE
     Indication: ACNE
     Dosage: UNK
     Route: 065
     Dates: end: 2020

REACTIONS (1)
  - Product residue present [Recovered/Resolved]
